FAERS Safety Report 10682651 (Version 5)
Quarter: 2016Q1

REPORT INFORMATION
  Report Type: Spontaneous
  Country: US (occurrence: US)
  Receive Date: 20141230
  Receipt Date: 20160108
  Transmission Date: 20160525
  Serious: Yes (Hospitalization, Other)
  Sender: FDA-Public Use
  Company Number: US-PFIZER INC-2014317113

PATIENT
  Age: 45 Year
  Sex: Female

DRUGS (27)
  1. LOMOTIL [Concomitant]
     Active Substance: ATROPINE SULFATE\DIPHENOXYLATE HYDROCHLORIDE
     Indication: DIARRHOEA
     Dosage: 2.5- 0.025 MG, 1 TO 2 TABLETS 4 TIMES DAILY AS NEEDED
     Route: 048
  2. DELTASONE [Concomitant]
     Active Substance: PREDNISONE
     Dosage: 5 MG, DAILY
     Route: 048
  3. PROBIOTIC [Concomitant]
     Active Substance: PROBIOTICS NOS
     Dosage: 3 BILLION CELL, 1 DAILY AS NEEDED (1 TO 2 DAILY)
     Route: 048
  4. DELTASONE [Concomitant]
     Active Substance: PREDNISONE
     Dosage: 7.5 MG, DAILY FOR 5 DAYS OUT OF WEEK
     Route: 048
  5. DELTASONE [Concomitant]
     Active Substance: PREDNISONE
     Dosage: 9 MG, DAILY FOR 2 DAYS OUT OF WEEK
     Route: 048
  6. PRILOSEC [Concomitant]
     Active Substance: OMEPRAZOLE MAGNESIUM
     Dosage: 20 MG, DAILY
     Route: 048
  7. REVATIO [Suspect]
     Active Substance: SILDENAFIL CITRATE
     Indication: SYSTEMIC SCLEROSIS
  8. TYLENOL [Concomitant]
     Active Substance: ACETAMINOPHEN
     Dosage: 500 MG, 2 TABS EVERY 6 HOURS
     Route: 048
  9. ROCALTROL [Concomitant]
     Active Substance: CALCITRIOL
     Dosage: 0.5 ?G, EVERY 48 HOURS
     Route: 048
  10. VALIUM [Concomitant]
     Active Substance: DIAZEPAM
     Dosage: 10 MG, AS NEEDED
     Route: 048
  11. NITROBID [Concomitant]
     Dosage: EVERY 8 HOURS
     Route: 061
  12. ASPIRIN (E.C.) [Concomitant]
     Active Substance: ASPIRIN
     Dosage: 81 MG, DAILY
     Route: 048
  13. CYANOCOBALAMIN. [Concomitant]
     Active Substance: CYANOCOBALAMIN
     Dosage: 1000 ?G, DAILY
     Route: 048
  14. REVATIO [Suspect]
     Active Substance: SILDENAFIL CITRATE
     Indication: CARDIOVASCULAR DISORDER
     Dosage: 20 MG, 3X/DAY (90 DAYS SUPPLY)
     Route: 048
  15. DENOSUMAB [Concomitant]
     Active Substance: DENOSUMAB
     Dosage: 60 MG/ML, INJECT 1 ML EVERY 6 MONTHS
     Route: 023
     Dates: start: 20140421
  16. CARDIZEM [Concomitant]
     Active Substance: DILTIAZEM HYDROCHLORIDE
     Dosage: 60 MG AT 8 AM AND 120 MG AT 8 PM
  17. DURAGESIC [Concomitant]
     Active Substance: FENTANYL
     Dosage: 100 MCG/HR, 1 PATCH EVERY 72 HRS
     Route: 062
  18. MAGNESIUM [Concomitant]
     Active Substance: MAGNESIUM
     Dosage: 84 MG, 2 TABS 2 TIMES DAILY
     Route: 048
  19. CYMBALTA [Concomitant]
     Active Substance: DULOXETINE HYDROCHLORIDE
     Dosage: 30 MG, DAILY
     Route: 048
  20. NEURONTIN [Concomitant]
     Active Substance: GABAPENTIN
     Dosage: 200 MG, 3 TIMES DAILY
     Route: 048
  21. LOPRESSOR [Concomitant]
     Active Substance: METOPROLOL TARTRATE
     Dosage: 25 MG, 3X/DAY
     Route: 048
  22. K-PHOS NEUTRAL [Concomitant]
     Active Substance: POTASSIUM PHOSPHATE\SODIUM PHOSPHATE
     Dosage: 250 MG, 2X/DAY
  23. DELTASONE [Concomitant]
     Active Substance: PREDNISONE
     Dosage: 5 MG TABLET TAKE 1.5 TABS DAILY ALTERNATE DAY DOSING
     Route: 048
  24. ROXICODONE [Concomitant]
     Active Substance: OXYCODONE HYDROCHLORIDE
     Dosage: 5 MG EVERY 4 HOURS AS NEEDED
     Route: 048
  25. KLOR-CON [Concomitant]
     Active Substance: POTASSIUM CHLORIDE
     Dosage: 10 MEQ, 2 TABS 2 TIMES DAILY
     Route: 048
  26. DELTASONE [Concomitant]
     Active Substance: PREDNISONE
     Dosage: 1 MG, DAILY
     Route: 048
  27. PROGRAF [Concomitant]
     Active Substance: TACROLIMUS\TACROLIMUS ANHYDROUS
     Dosage: 1 MG CAPSULE TAKE 4 MG IN THE AM AND 5 MG IN THE PM

REACTIONS (4)
  - Renal disorder [Recovered/Resolved]
  - Ureteric stenosis [Recovered/Resolved]
  - Intentional product use issue [Unknown]
  - Product use issue [Unknown]

NARRATIVE: CASE EVENT DATE: 201308
